FAERS Safety Report 8557602-0 (Version None)
Quarter: 2012Q3

REPORT INFORMATION
  Report Type: 
  Country: None (occurrence: None)
  Receive Date: 20120725
  Receipt Date: 20120725
  Transmission Date: 20120928
  Serious: No
  Sender: FDA-Public Use
  Company Number: None

PATIENT
  Age: 66 Year
  Sex: Female
  Weight: 89.8122 kg

DRUGS (1)
  1. MODAFINIL [Suspect]
     Indication: NARCOLEPSY
     Dosage: 1 1/2 PO
     Route: 048
     Dates: start: 20110501, end: 20110601

REACTIONS (2)
  - DRUG INEFFECTIVE [None]
  - PRODUCT SUBSTITUTION ISSUE [None]
